FAERS Safety Report 12387577 (Version 1)
Quarter: 2016Q2

REPORT INFORMATION
  Report Type: Report from Study
  Country: FR (occurrence: FR)
  Receive Date: 20160520
  Receipt Date: 20160520
  Transmission Date: 20160815
  Serious: Yes (Other)
  Sender: FDA-Public Use
  Company Number: FR-BRISTOL-MYERS SQUIBB COMPANY-BMS-2016-037388

PATIENT
  Age: 10 Year
  Sex: Female

DRUGS (3)
  1. DASATINIB [Suspect]
     Active Substance: DASATINIB
     Indication: BRAIN NEOPLASM MALIGNANT
     Dosage: 130 MG, QD
     Route: 065
     Dates: start: 20160331
  2. DASATINIB [Suspect]
     Active Substance: DASATINIB
     Dosage: 100 MG, BID
     Route: 065
     Dates: start: 20151106, end: 20160205
  3. DASATINIB [Suspect]
     Active Substance: DASATINIB
     Dosage: 190 MG, QD
     Route: 065
     Dates: start: 20160206

REACTIONS (1)
  - Large granular lymphocytosis [Not Recovered/Not Resolved]

NARRATIVE: CASE EVENT DATE: 20160427
